FAERS Safety Report 6779507-8 (Version None)
Quarter: 2010Q2

REPORT INFORMATION
  Report Type: 
  Country: None (occurrence: None)
  Receive Date: 20100618
  Receipt Date: 20100614
  Transmission Date: 20101027
  Serious: Yes (Hospitalization)
  Sender: FDA-Public Use
  Company Number: US-ELI_LILLY_AND_COMPANY-US201006003863

PATIENT
  Age: 39 Year
  Sex: Female

DRUGS (3)
  1. HUMULIN R [Suspect]
     Dosage: UNK, UNKNOWN
  2. LANTUS [Concomitant]
     Indication: TYPE 1 DIABETES MELLITUS
     Dosage: 40 U, DAILY (1/D)
  3. NOVOLIN [Concomitant]

REACTIONS (6)
  - BLOOD GLUCOSE DECREASED [None]
  - BLOOD GLUCOSE INCREASED [None]
  - DIABETIC KETOACIDOSIS [None]
  - MALAISE [None]
  - TREMOR [None]
  - VOMITING [None]
